FAERS Safety Report 10711709 (Version 3)
Quarter: 2015Q2

REPORT INFORMATION
  Report Type: Spontaneous
  Country: US (occurrence: US)
  Receive Date: 20150114
  Receipt Date: 20150508
  Transmission Date: 20150821
  Serious: Yes (Other)
  Sender: FDA-Public Use
  Company Number: US-PFIZER INC-2015004868

PATIENT
  Age: 70 Year
  Sex: Female
  Weight: 132 kg

DRUGS (13)
  1. MAGNESIUM [Concomitant]
     Active Substance: MAGNESIUM
     Dosage: UNK
  2. SPIRONOLACTONE. [Concomitant]
     Active Substance: SPIRONOLACTONE
     Dosage: 25 MG, 1X/DAY
  3. DIGOXIN. [Concomitant]
     Active Substance: DIGOXIN
     Indication: ATRIAL FIBRILLATION
     Dosage: UNK
  4. XALATAN [Suspect]
     Active Substance: LATANOPROST
     Indication: INTRAOCULAR PRESSURE INCREASED
     Dosage: ONE DROP IN EACH EYE (OU) DAILY AROUND 10PM
     Route: 047
  5. VITAMIN D3 [Concomitant]
     Active Substance: CHOLECALCIFEROL
     Dosage: 5000 UNITS, 1X/DAY
  6. WARFARIN [Concomitant]
     Active Substance: WARFARIN
     Dosage: 5 OR 6 MG DAILY DEPENDING ON BLOOD LEVELS
  7. METFORMIN [Concomitant]
     Active Substance: METFORMIN HYDROCHLORIDE
     Indication: BLOOD PRESSURE
     Dosage: 500 MG, 2X/DAY
  8. LOSARTAN [Concomitant]
     Active Substance: LOSARTAN
     Dosage: 50 MG, 1X/DAY
  9. POTASSIUM CHLORIDE. [Suspect]
     Active Substance: POTASSIUM CHLORIDE
     Dosage: 20 MEQ, DAILY
  10. METOPROLOL [Concomitant]
     Active Substance: METOPROLOL
     Indication: BLOOD PRESSURE
     Dosage: 50 MG, 2X/DAY
  11. XALATAN [Suspect]
     Active Substance: LATANOPROST
     Dosage: ONE DROP IN EACH EYE (OU) DAILY AROUND 10PM
     Route: 047
     Dates: start: 201501
  12. METFORMIN [Concomitant]
     Active Substance: METFORMIN HYDROCHLORIDE
     Indication: DIABETES MELLITUS
  13. FUROSEMIDE. [Concomitant]
     Active Substance: FUROSEMIDE
     Dosage: 40 MG, DAILY

REACTIONS (7)
  - Malaise [Not Recovered/Not Resolved]
  - Product dropper issue [Unknown]
  - Body height decreased [Unknown]
  - Incorrect dose administered [Unknown]
  - Atrial fibrillation [Not Recovered/Not Resolved]
  - Wrong technique in drug usage process [Unknown]
  - Eye pruritus [Unknown]

NARRATIVE: CASE EVENT DATE: 2012
